FAERS Safety Report 9116085 (Version 1)
Quarter: 2013Q1

REPORT INFORMATION
  Report Type: Spontaneous
  Country: FR (occurrence: FR)
  Receive Date: 20130225
  Receipt Date: 20130225
  Transmission Date: 20140127
  Serious: Yes (Hospitalization)
  Sender: FDA-Public Use
  Company Number: FR-PFIZER INC-2013063169

PATIENT
  Age: 62 Year
  Sex: Female

DRUGS (13)
  1. EFFEXOR [Suspect]
     Dosage: 100 MG, 2X/DAY
     Route: 048
     Dates: end: 20121026
  2. AMOXICILLIN [Suspect]
     Dosage: 1 G, 3X/DAY
     Route: 042
     Dates: start: 20121021, end: 20121024
  3. CRESTOR [Suspect]
     Dosage: 5 MG, 1X/DAY
     Route: 048
     Dates: end: 20121026
  4. CLAVULANIC ACID [Suspect]
     Dosage: 1 G, 3X/DAY
     Route: 042
     Dates: start: 20121021, end: 20121024
  5. LEVOTHYROX [Concomitant]
     Dosage: UNK
  6. INEXIUM [Concomitant]
     Dosage: UNK
  7. BETNESOL [Concomitant]
     Dosage: UNK, AS NEEDED
  8. LERCAN [Concomitant]
     Dosage: UNK
  9. TAREG [Concomitant]
     Dosage: UNK
  10. TEMESTA [Concomitant]
     Dosage: UNK
  11. ATROVENT [Concomitant]
     Dosage: UNK, AS NEEDED
  12. BRICANYL [Concomitant]
     Dosage: UNK, AS NEEDED
  13. VENTOLINE [Concomitant]
     Dosage: UNK

REACTIONS (2)
  - Hepatitis [Recovering/Resolving]
  - Chronic obstructive pulmonary disease [Unknown]
